FAERS Safety Report 25508610 (Version 1)
Quarter: 2025Q3

REPORT INFORMATION
  Report Type: Spontaneous
  Country: EU (occurrence: EU)
  Receive Date: 20250703
  Receipt Date: 20250703
  Transmission Date: 20251021
  Serious: Yes (Hospitalization)
  Sender: AUROBINDO
  Company Number: EU-MLMSERVICE-20250619-PI548442-00202-1

PATIENT
  Age: 63 Year
  Sex: Male

DRUGS (1)
  1. LINEZOLID [Suspect]
     Active Substance: LINEZOLID
     Indication: Enterococcal infection
     Dosage: 600 MILLIGRAM, TWO TIMES A DAY
     Route: 065

REACTIONS (2)
  - Platelet count decreased [Recovering/Resolving]
  - Toxicity to various agents [Recovered/Resolved]
